FAERS Safety Report 20338471 (Version 1)
Quarter: 2022Q1

REPORT INFORMATION
  Report Type: Spontaneous
  Country: None (occurrence: A1)
  Receive Date: 20220115
  Receipt Date: 20220115
  Transmission Date: 20220423
  Serious: Yes (Death, Other)
  Sender: FDA-Public Use
  Company Number: A1-Acella Pharmaceuticals, LLC-2123966

PATIENT
  Sex: Male
  Weight: 0.8 kg

DRUGS (1)
  1. GABAPENTIN [Suspect]
     Active Substance: GABAPENTIN
     Indication: Product used for unknown indication
     Route: 064

REACTIONS (8)
  - Withdrawal syndrome [Unknown]
  - Pulmonary hypertension [Unknown]
  - Hypotension [Unknown]
  - Thrombocytopenia [Unknown]
  - Hypoxia [Unknown]
  - Respiratory failure [Unknown]
  - Newborn persistent pulmonary hypertension [Fatal]
  - Death [Fatal]
